FAERS Safety Report 25060233 (Version 3)
Quarter: 2025Q2

REPORT INFORMATION
  Report Type: Report from Study
  Country: US (occurrence: US)
  Receive Date: 20250310
  Receipt Date: 20250616
  Transmission Date: 20250716
  Serious: Yes (Other)
  Sender: JOHNSON AND JOHNSON
  Company Number: US-JNJFOC-20250272960

PATIENT
  Age: 7 Decade
  Sex: Female

DRUGS (2)
  1. REMICADE [Suspect]
     Active Substance: INFLIXIMAB
     Indication: Crohn^s disease
     Route: 041
  2. REMICADE [Suspect]
     Active Substance: INFLIXIMAB
     Route: 041
     Dates: start: 2018, end: 202402

REACTIONS (9)
  - Hernia [Recovered/Resolved]
  - Abscess [Recovered/Resolved]
  - Endometrial cancer [Recovered/Resolved]
  - Uterine cancer [Recovered/Resolved]
  - Intestinal stenosis [Recovered/Resolved]
  - Scar [Unknown]
  - Psoriasis [Recovering/Resolving]
  - Infusion related reaction [Unknown]
  - Off label use [Unknown]

NARRATIVE: CASE EVENT DATE: 20220101
